FAERS Safety Report 6536541-0 (Version None)
Quarter: 2010Q1

REPORT INFORMATION
  Report Type: 
  Country: None (occurrence: None)
  Receive Date: 20100113
  Receipt Date: 20100106
  Transmission Date: 20100710
  Serious: Yes (Hospitalization)
  Sender: FDA-Public Use
  Company Number: PL-WYE-H11729709

PATIENT
  Sex: Male
  Weight: 81 kg

DRUGS (8)
  1. TEMSIROLIMUS [Suspect]
     Indication: RENAL CELL CARCINOMA
     Route: 042
     Dates: start: 20090523, end: 20091016
  2. ATORVASTATIN [Concomitant]
     Indication: PROPHYLAXIS
     Dosage: NOT PROVIDED
     Dates: start: 20090627
  3. RAMIPRIL [Concomitant]
     Indication: PROPHYLAXIS
     Dosage: NOT PROVIDED
     Dates: start: 20070601
  4. OMEPRAZOLE [Concomitant]
     Indication: PROPHYLAXIS
     Dosage: NOT PROVIDED
     Dates: start: 20090301
  5. METFORMIN HYDROCHLORIDE [Concomitant]
     Indication: DIABETES MELLITUS
     Dosage: NOT PROVIDED
     Dates: start: 20090821
  6. FENOFIBRATE [Concomitant]
     Dosage: NOT PROVIDED
     Dates: start: 20090813
  7. BEVACIZUMAB [Suspect]
     Route: 042
     Dates: start: 20090523, end: 20091016
  8. CLONIDINE HCL [Concomitant]
     Indication: PROPHYLAXIS
     Dosage: NOT PROVIDED
     Dates: start: 20070601

REACTIONS (1)
  - RENAL DISORDER [None]
